FAERS Safety Report 10237762 (Version 1)
Quarter: 2014Q2

REPORT INFORMATION
  Report Type: Spontaneous
  Country: FR (occurrence: FR)
  Receive Date: 20140616
  Receipt Date: 20140616
  Transmission Date: 20141212
  Serious: Yes (Hospitalization)
  Sender: FDA-Public Use
  Company Number: FR-ROCHE-1417141

PATIENT
  Sex: Female

DRUGS (6)
  1. VALIUM [Suspect]
     Indication: DEPRESSION
     Route: 048
     Dates: end: 20131115
  2. ABILIFY [Suspect]
     Indication: DEPRESSION
     Route: 048
     Dates: end: 20131115
  3. DEPAKOTE [Suspect]
     Indication: DEPRESSION
     Route: 048
     Dates: end: 20131115
  4. PROZAC [Suspect]
     Indication: DEPRESSION
     Route: 048
     Dates: end: 20131115
  5. THERALENE (FRANCE) [Suspect]
     Indication: DEPRESSION
     Route: 048
     Dates: end: 20131115
  6. VALDOXAN [Suspect]
     Indication: DEPRESSION
     Route: 048
     Dates: end: 20131115

REACTIONS (2)
  - Maternal exposure during pregnancy [Unknown]
  - Gestational diabetes [Unknown]
